FAERS Safety Report 12678291 (Version 1)
Quarter: 2016Q3

REPORT INFORMATION
  Report Type: Spontaneous
  Country: GB (occurrence: GB)
  Receive Date: 20160823
  Receipt Date: 20160823
  Transmission Date: 20161109
  Serious: Yes (Other)
  Sender: FDA-Public Use
  Company Number: GB-MYLANLABS-2016M1034258

PATIENT

DRUGS (18)
  1. BYETTA [Concomitant]
     Active Substance: EXENATIDE
     Dosage: UP TO ONE HOUR BEFORE FOOD
     Dates: start: 20151223, end: 20160509
  2. FERROUS FUMARATE [Concomitant]
     Active Substance: FERROUS FUMARATE
     Dosage: 1 DF, TID
     Dates: start: 20160603, end: 20160701
  3. OMEPRAZOLE. [Concomitant]
     Active Substance: OMEPRAZOLE
     Dosage: 1 DF, QD
     Dates: start: 20151204
  4. CLARITHROMYCIN. [Concomitant]
     Active Substance: CLARITHROMYCIN
     Dosage: 1 DF, UNK
     Dates: start: 20160805
  5. HUMULIN M3 [Concomitant]
     Active Substance: INSULIN HUMAN
     Dosage: AS DIRECTED.
     Dates: start: 20160509
  6. ACTIVON TULLE [Concomitant]
     Dosage: USE AS DIRECTED
     Dates: start: 20160805
  7. EMPAGLIFLOZIN [Concomitant]
     Active Substance: EMPAGLIFLOZIN
     Dosage: 1 DF, QD
     Dates: start: 20151223, end: 20160509
  8. GLICLAZIDE [Concomitant]
     Active Substance: GLICLAZIDE
     Dosage: 2 DF, BID
     Dates: start: 20151204, end: 20160509
  9. GLUCOSE [Concomitant]
     Active Substance: DEXTROSE
     Dosage: USE AS DIRECTED
     Dates: start: 20160509
  10. DOXYCYCLINE. [Suspect]
     Active Substance: DOXYCYCLINE
     Dosage: UNK
     Dates: start: 20160805
  11. ANORO ELLIPTA [Concomitant]
     Active Substance: UMECLIDINIUM BROMIDE\VILANTEROL TRIFENATATE
     Route: 055
     Dates: start: 20151223
  12. ASPIRIN                            /00002701/ [Concomitant]
     Active Substance: ASPIRIN
     Dosage: 1 DF, QD
     Dates: start: 20151204
  13. METFORMIN [Concomitant]
     Active Substance: METFORMIN HYDROCHLORIDE
     Dosage: 1 DF, TID
     Dates: start: 20151204
  14. QUINAPRIL. [Concomitant]
     Active Substance: QUINAPRIL
     Dosage: 1 DF, QD
     Dates: start: 20151204
  15. SALBUTAMOL [Concomitant]
     Active Substance: ALBUTEROL
     Dosage: 2 DF, AS NECESSARY
     Route: 055
     Dates: start: 20151229
  16. FERROUS SULFATE. [Concomitant]
     Active Substance: FERROUS SULFATE
     Dosage: 1 DF, TID
     Dates: start: 20160509, end: 20160606
  17. HYDROXOCOBALAMIN [Concomitant]
     Active Substance: HYDROXOCOBALAMIN
     Dosage: 1MG THREE TIMES A WEEK FOR 2 WEEKS THEN EVERY 3...
     Dates: start: 20160506, end: 20160603
  18. SIMVASTATIN. [Concomitant]
     Active Substance: SIMVASTATIN
     Dosage: AT NIGHT
     Dates: start: 20151204

REACTIONS (1)
  - Malaise [Recovering/Resolving]

NARRATIVE: CASE EVENT DATE: 20160805
